FAERS Safety Report 6483864-X (Version None)
Quarter: 2009Q4

REPORT INFORMATION
  Report Type: 
  Country: None (occurrence: None)
  Receive Date: 20091123
  Receipt Date: 20090724
  Transmission Date: 20100525
  Serious: No
  Sender: FDA-Public Use
  Company Number: 8049421

PATIENT
  Age: 26 Year
  Sex: Female
  Weight: 54.5 kg

DRUGS (3)
  1. CIMZIA [Suspect]
     Indication: CROHN'S DISEASE
     Dosage: 400 MG /M SC
     Route: 058
     Dates: start: 20080326
  2. AMOXICILLIN [Concomitant]
  3. ORTHO TRI-CYCLEN [Concomitant]

REACTIONS (2)
  - GASTROINTESTINAL INFECTION [None]
  - PAIN IN EXTREMITY [None]
